FAERS Safety Report 18054502 (Version 2)
Quarter: 2020Q3

REPORT INFORMATION
  Report Type: Spontaneous
  Country: US (occurrence: US)
  Receive Date: 20200722
  Receipt Date: 20200903
  Transmission Date: 20201103
  Serious: Yes (Hospitalization)
  Sender: FDA-Public Use
  Company Number: US-SA-2020SA186887

PATIENT

DRUGS (33)
  1. OMEPRAZOLE. [Concomitant]
     Active Substance: OMEPRAZOLE
     Indication: ACID PEPTIC DISEASE
     Dosage: 20 MG, BID
  2. OMEPRAZOLE. [Concomitant]
     Active Substance: OMEPRAZOLE
     Indication: GASTROOESOPHAGEAL REFLUX DISEASE
  3. VENTOLIN HFA [Concomitant]
     Active Substance: ALBUTEROL SULFATE
     Indication: ASTHMA
     Dosage: 2 DF, PRN
  4. CHOLECALCIFEROL [Concomitant]
     Active Substance: CHOLECALCIFEROL
     Dosage: 1 DF, QD
     Route: 048
  5. VALIUM [Concomitant]
     Active Substance: DIAZEPAM
     Dosage: 2 MG, PRN; EVERY 8 HOURS
  6. SPIRIVA [Concomitant]
     Active Substance: TIOTROPIUM BROMIDE MONOHYDRATE
     Indication: ASTHMA
     Dosage: 2 DF
  7. SINGULAIR [Concomitant]
     Active Substance: MONTELUKAST SODIUM
     Indication: ASTHMA
     Dosage: 1 DF, QD
     Route: 048
  8. HYDRODIURIL [Concomitant]
     Active Substance: HYDROCHLOROTHIAZIDE
  9. VITAMIN B12 [COBAMAMIDE] [Concomitant]
     Dosage: 1 DF, QD
     Route: 048
  10. DEPAKOTE ER [Concomitant]
     Active Substance: DIVALPROEX SODIUM
     Dosage: 1000 MG, QD
     Route: 048
  11. AUGMENTIN [Concomitant]
     Active Substance: AMOXICILLIN\CLAVULANATE POTASSIUM
     Route: 048
  12. DALIRESP [Concomitant]
     Active Substance: ROFLUMILAST
     Indication: ASTHMA
     Dosage: 1 DF, QD
     Route: 048
  13. DESYREL [Concomitant]
     Active Substance: TRAZODONE HYDROCHLORIDE
     Dosage: 150 MG, HS
     Route: 048
  14. DOXYCYCLINE. [Concomitant]
     Active Substance: DOXYCYCLINE
  15. FLONASE [MOMETASONE FUROATE] [Concomitant]
     Active Substance: MOMETASONE FUROATE
  16. OLOPATADINE. [Concomitant]
     Active Substance: OLOPATADINE
     Dosage: 2 UNK; 2 SPRAYS
     Route: 045
  17. EPINEPHRINE. [Concomitant]
     Active Substance: EPINEPHRINE
     Dosage: 1 DF, PRN
  18. CYMBALTA [Concomitant]
     Active Substance: DULOXETINE HYDROCHLORIDE
     Dosage: 1 DF, QD
     Route: 048
  19. FLUTICASONE. [Concomitant]
     Active Substance: FLUTICASONE
     Dosage: 1 DF, BID
     Route: 045
  20. DUPIXENT [Suspect]
     Active Substance: DUPILUMAB
     Indication: ASTHMA
     Dosage: UNK UNK, BIM
     Dates: start: 2020, end: 20200622
  21. XYZAL [Concomitant]
     Active Substance: LEVOCETIRIZINE DIHYDROCHLORIDE
  22. PEPCID [Concomitant]
     Active Substance: FAMOTIDINE
     Dosage: 1 DF, BID
     Route: 048
  23. ROBAXIN [Concomitant]
     Active Substance: METHOCARBAMOL
     Dosage: 1 DF, TID
     Route: 048
  24. ELAVIL [ALLOPURINOL] [Concomitant]
     Active Substance: ALLOPURINOL
     Dosage: 50 MG, HS
     Route: 048
  25. BREO ELLIPTA [Concomitant]
     Active Substance: FLUTICASONE FUROATE\VILANTEROL TRIFENATATE
     Indication: ASTHMA
  26. LIPITOR [Concomitant]
     Active Substance: ATORVASTATIN CALCIUM
     Dosage: 1 DF, HS
     Route: 048
  27. SYNTHROID [Concomitant]
     Active Substance: LEVOTHYROXINE SODIUM
     Dosage: 1 DF, QD
     Route: 048
  28. NEURONTIN [Concomitant]
     Active Substance: GABAPENTIN
     Dosage: 7 DF, QD; 3 DF IN MORNING, 2 IN AFTERNOON AND 2 AT BEDTIME
     Route: 048
  29. BENTYL [Concomitant]
     Active Substance: DICYCLOMINE HYDROCHLORIDE
     Dosage: 1 DF, QID
     Route: 048
  30. MINIPRESS [Concomitant]
     Active Substance: PRAZOSIN HYDROCHLORIDE
     Dosage: 1 MG, HS
     Route: 048
  31. COSYNTROPIN. [Concomitant]
     Active Substance: COSYNTROPIN
     Dosage: UNK
     Dates: start: 20200302
  32. PRILOSEC [Concomitant]
     Active Substance: OMEPRAZOLE MAGNESIUM
     Dosage: 2 DF, QD
     Route: 048
  33. IMITREX [Concomitant]
     Active Substance: SUMATRIPTAN SUCCINATE
     Indication: MIGRAINE
     Dosage: 1 DF, PRN
     Route: 048

REACTIONS (20)
  - Condition aggravated [Unknown]
  - Conjunctivitis allergic [Unknown]
  - Injection site infection [Unknown]
  - Eschar [Unknown]
  - Injection site pain [Unknown]
  - Injection site exfoliation [Unknown]
  - Injection site erythema [Unknown]
  - Pyrexia [Unknown]
  - Injection site swelling [Unknown]
  - Subcutaneous abscess [Unknown]
  - Faeces discoloured [Recovered/Resolved]
  - Inappropriate schedule of product administration [Unknown]
  - Ischaemia [Unknown]
  - Tremor [Unknown]
  - Injection site vesicles [Unknown]
  - Arthralgia [Unknown]
  - Wound [Unknown]
  - Chills [Unknown]
  - Injection site pain [Unknown]
  - Drug hypersensitivity [Unknown]

NARRATIVE: CASE EVENT DATE: 2020
